FAERS Safety Report 5087396-5 (Version None)
Quarter: 2006Q3

REPORT INFORMATION
  Report Type: 
  Country: None (occurrence: None)
  Receive Date: 20060727
  Receipt Date: 20060517
  Transmission Date: 20061208
  Serious: Yes (Other)
  Sender: FDA-Public Use
  Company Number: 2006065951

PATIENT
  Age: 45 Year
  Sex: Female
  Weight: 113.3993 kg

DRUGS (9)
  1. LYRICA [Suspect]
     Indication: NEURALGIA
     Dosage: 100 MG (50 MG, 2 IN 1 D), ORAL
     Route: 048
     Dates: start: 20060502, end: 20060504
  2. LASIX [Concomitant]
  3. POTASSIUM (POTASSIUM) [Concomitant]
  4. TOPROL-XL [Concomitant]
  5. TRAZODONE HCL [Concomitant]
  6. PLAVIX [Concomitant]
  7. PERCOCET [Concomitant]
  8. CRESTOR [Concomitant]
  9. LISINOPRIL [Concomitant]

REACTIONS (2)
  - PAIN [None]
  - VERTIGO [None]
